FAERS Safety Report 20862680 (Version 1)
Quarter: 2022Q2

REPORT INFORMATION
  Report Type: Spontaneous
  Country: US (occurrence: None)
  Receive Date: 20220523
  Receipt Date: 20220523
  Transmission Date: 20220721
  Serious: Yes (Death)
  Sender: FDA-Public Use
  Company Number: None

PATIENT
  Sex: Male

DRUGS (1)
  1. EUFLEXXA [Suspect]
     Active Substance: HYALURONATE SODIUM
     Indication: Osteoarthritis
     Dosage: OTHER STRENGTH : 10MG/ML, 2ML;?OTHER QUANTITY : 20MG/2ML;?FREQUENCY : WEEKLY;?INJECT 1 SYRINGE INTRA
     Route: 014
     Dates: start: 20210324

REACTIONS (1)
  - Death [None]
